FAERS Safety Report 4415908-0 (Version None)
Quarter: 2004Q3

REPORT INFORMATION
  Report Type: 
  Country: None (occurrence: None)
  Receive Date: 20040805
  Receipt Date: 20040527
  Transmission Date: 20050211
  Serious: No
  Sender: FDA-Public Use
  Company Number: US-GLAXOSMITHKLINE-A0512394A

PATIENT

DRUGS (2)
  1. AVANDAMET [Suspect]
     Dosage: 1MG TWICE PER DAY
     Route: 048
  2. LIPITOR [Concomitant]
     Dosage: 5MG SINGLE DOSE

REACTIONS (1)
  - BLOOD CREATINE PHOSPHOKINASE INCREASED [None]
